FAERS Safety Report 9363287 (Version 1)
Quarter: 2013Q2

REPORT INFORMATION
  Report Type: Spontaneous
  Country: US (occurrence: US)
  Receive Date: 20130624
  Receipt Date: 20130624
  Transmission Date: 20140414
  Serious: Yes (Death)
  Sender: FDA-Public Use
  Company Number: US-JNJFOC-20130608034

PATIENT
  Sex: 0

DRUGS (29)
  1. DOXORUBICIN [Suspect]
     Indication: ACUTE LYMPHOCYTIC LEUKAEMIA
     Dosage: CYCLES 1, 3, 5, 7 OR CYCLES 1, 4, 6,8 CONTINUOUS INFUSION 2-24 HRS DAY 4
     Route: 042
  2. CYCLOPHOSPHAMIDE [Suspect]
     Indication: ACUTE LYMPHOCYTIC LEUKAEMIA
     Dosage: CYCLES 1, 3, 5, 7 OR CYCLES 1, 4, 6, 8, OVER??2 HRS EVERY 12 HRS, 6 DOSES ON DAYS 1-3
     Route: 042
  3. VINCRISTINE [Suspect]
     Indication: ACUTE LYMPHOCYTIC LEUKAEMIA
     Dosage: CYCLES 1, 3, 5, 7 OR CYCLES 1, 4, 6, 8??DAYS 1, 11
     Route: 042
  4. DEXAMETHASONE [Suspect]
     Indication: ACUTE LYMPHOCYTIC LEUKAEMIA
     Dosage: CYCLES 1, 3, 5, 7 OR CYCLES 1, 4, 6, 8??ORAL, DAYS 1-4, 11-14
     Route: 065
  5. RITUXIMAB [Suspect]
     Indication: ACUTE LYMPHOCYTIC LEUKAEMIA
     Dosage: CYCLES 1-4 DAYS 1, 11 IF CD20 LESS THAN OR EQUALS TO 20%
     Route: 042
  6. DAUNORUBICIN [Suspect]
     Indication: ACUTE LYMPHOCYTIC LEUKAEMIA
     Dosage: CYCLE 2??OVER 12 HRS DAYS 1-2
     Route: 042
  7. CYTARABINE [Suspect]
     Indication: PROPHYLAXIS
     Dosage: CYCLES 2, 4, 6, 8 OR CYCLES 3, 5, 7, 9,??3 G/M2 OVER 2 HRS, EVERY 12 HRS, 4 DOSES ON DAYS 2-3
     Route: 042
  8. CYTARABINE [Suspect]
     Indication: PROPHYLAXIS
     Dosage: CYCLE 2, 1.5 G/M2 CONTINUOUS INFUSION DAYS 1-2
     Route: 042
  9. CYTARABINE [Suspect]
     Indication: ACUTE LYMPHOCYTIC LEUKAEMIA
     Dosage: CYCLE 2, 1.5 G/M2 CONTINUOUS INFUSION DAYS 1-2
     Route: 042
  10. CYTARABINE [Suspect]
     Indication: ACUTE LYMPHOCYTIC LEUKAEMIA
     Dosage: CYCLES 2, 4, 6, 8 OR CYCLES 3, 5, 7, 9,??3 G/M2 OVER 2 HRS, EVERY 12 HRS, 4 DOSES ON DAYS 2-3
     Route: 042
  11. METHOTREXATE [Suspect]
     Indication: PROPHYLAXIS
     Dosage: CYCLES 2, 4, 6, 8 OR CYCLES 3, 5, 7, 9??200 MG/M2 OVER 2 HRS THEN 800 MG/M2 OVER 22 HRS DAY 1
     Route: 042
  12. METHOTREXATE [Suspect]
     Indication: PROPHYLAXIS
     Dosage: CYCLES 2, 4, 6, 8 OR CYCLES 3, 5, 7, 9??200 MG/M2 OVER 2 HRS THEN 800 MG/M2 OVER 22 HRS DAY 1
     Route: 042
  13. METHOTREXATE [Suspect]
     Indication: PROPHYLAXIS
     Dosage: CYCLES 2, 4, 6, 8 OR CYCLES 3, 5, 7, 9??200 MG/M2 OVER 2 HRS THEN 800 MG/M2 OVER 22 HRS DAY 1
     Route: 042
  14. METHOTREXATE [Suspect]
     Indication: ACUTE LYMPHOCYTIC LEUKAEMIA
     Dosage: CYCLES 2, 4, 6, 8 OR CYCLES 3, 5, 7, 9??200 MG/M2 OVER 2 HRS THEN 800 MG/M2 OVER 22 HRS DAY 1
     Route: 042
  15. METHOTREXATE [Suspect]
     Indication: ACUTE LYMPHOCYTIC LEUKAEMIA
     Dosage: CYCLES 2, 4, 6, 8 OR CYCLES 3, 5, 7, 9??200 MG/M2 OVER 2 HRS THEN 800 MG/M2 OVER 22 HRS DAY 1
     Route: 042
  16. METHOTREXATE [Suspect]
     Indication: ACUTE LYMPHOCYTIC LEUKAEMIA
     Dosage: CYCLES 2, 4, 6, 8 OR CYCLES 3, 5, 7, 9??200 MG/M2 OVER 2 HRS THEN 800 MG/M2 OVER 22 HRS DAY 1
     Route: 042
  17. MESNA [Suspect]
     Indication: ACUTE LYMPHOCYTIC LEUKAEMIA
     Dosage: CONTINUOUS INFUSION DAYS 1-3
     Route: 042
  18. PREDNISONE [Suspect]
     Indication: ACUTE LYMPHOCYTIC LEUKAEMIA
     Dosage: CYCLE 2, DAYS 1-5
     Route: 048
  19. SOLU-MEDROL [Suspect]
     Indication: ACUTE LYMPHOCYTIC LEUKAEMIA
     Dosage: CYCLES 2, 4, 6, 8 OR CYCLES 3, 5, 7, 9??CONTINUOUS INFUSION DAYS 1-3
     Route: 042
  20. 6-MERCAPTOPURINE [Suspect]
     Indication: ACUTE LYMPHOCYTIC LEUKAEMIA
     Route: 042
  21. GRANULOCYTE COLONY STIMULATING FACTOR [Concomitant]
     Dosage: DAILY UNTIL ANC } 10 9/ L
     Route: 058
  22. PLATELET [Concomitant]
     Route: 065
  23. LEUCOVORIN [Concomitant]
     Dosage: 50-100 MG EVERY 4-6 HRS
     Route: 042
  24. LEUCOVORIN [Concomitant]
     Dosage: 50-100 MG EVERY 4-6 HRS
     Route: 042
  25. L-ASPARAGINASE [Concomitant]
     Dosage: 20,000 UNITS DAY 2 INTO 4 WEEKLY
     Route: 042
  26. RASBURICASE [Concomitant]
     Route: 065
  27. ALLOPURINOL [Concomitant]
     Route: 065
  28. ACETAZOLAMIDE [Concomitant]
     Route: 065
  29. PEGFILGRASTIM [Concomitant]
     Route: 058

REACTIONS (3)
  - Hypoxic-ischaemic encephalopathy [Fatal]
  - Convulsion [Fatal]
  - Off label use [Unknown]
